FAERS Safety Report 15833628 (Version 1)
Quarter: 2019Q1

REPORT INFORMATION
  Report Type: Spontaneous
  Country: ES (occurrence: ES)
  Receive Date: 20190116
  Receipt Date: 20190116
  Transmission Date: 20190417
  Serious: Yes (Hospitalization, Other)
  Sender: FDA-Public Use
  Company Number: ES-IMPAX LABORATORIES, LLC-2016-IPXL-00604

PATIENT
  Age: 25 Year
  Sex: Male

DRUGS (6)
  1. LORMETAZEPAM [Suspect]
     Active Substance: LORMETAZEPAM
     Indication: BIPOLAR DISORDER
     Dosage: 2 MILLIGRAM, DAILY
     Route: 065
  2. LAMOTRIGINE ODT [Suspect]
     Active Substance: LAMOTRIGINE
     Indication: BIPOLAR DISORDER
     Dosage: 25 MG, DAILY
     Route: 065
  3. LITHIUM. [Suspect]
     Active Substance: LITHIUM
     Indication: BIPOLAR DISORDER
     Dosage: 1600 MILLIGRAM, DAILY
     Route: 065
  4. LAMOTRIGINE ODT [Suspect]
     Active Substance: LAMOTRIGINE
     Dosage: 50 MG, DAILY
     Route: 065
  5. LAMOTRIGINE ODT [Suspect]
     Active Substance: LAMOTRIGINE
     Dosage: 200 MG, DAILY
     Route: 065
  6. RISPERIDONE. [Suspect]
     Active Substance: RISPERIDONE
     Indication: BIPOLAR DISORDER
     Dosage: 4.5 MILLIGRAM, DAILY
     Route: 065

REACTIONS (4)
  - Toxicity to various agents [Recovered/Resolved]
  - Drug titration error [Recovered/Resolved]
  - Drug reaction with eosinophilia and systemic symptoms [Recovered/Resolved]
  - Renal failure [Unknown]
